FAERS Safety Report 20429595 (Version 1)
Quarter: 2022Q1

REPORT INFORMATION
  Report Type: Report from Study
  Country: FR (occurrence: FR)
  Receive Date: 20220204
  Receipt Date: 20220204
  Transmission Date: 20220423
  Serious: Yes (Hospitalization)
  Sender: FDA-Public Use
  Company Number: FR-SERVIER-S19006355

PATIENT

DRUGS (8)
  1. ONCASPAR [Suspect]
     Active Substance: PEGASPARGASE
     Indication: Acute lymphocytic leukaemia
     Dosage: 1330 IU, ON DAY 4
     Route: 042
     Dates: start: 20190322, end: 20190322
  2. DEXAMETHASONE [Suspect]
     Active Substance: DEXAMETHASONE
     Indication: Acute lymphocytic leukaemia
     Dosage: 10.5 MG, ON DAYS 1 TO 14
     Route: 048
     Dates: start: 20190319, end: 20190401
  3. VINCRISTINE SULFATE [Suspect]
     Active Substance: VINCRISTINE SULFATE
     Indication: Acute lymphocytic leukaemia
     Dosage: 1.6 MG, ON DAYS 1, 8 AND 15
     Route: 042
     Dates: start: 20190319, end: 20190402
  4. ADRIAMYCIN [Suspect]
     Active Substance: DOXORUBICIN HYDROCHLORIDE
     Indication: Acute lymphocytic leukaemia
     Dosage: 26.5 MG, ON DAYS 1, 8 AND 15
     Route: 042
     Dates: start: 20190319, end: 20190402
  5. METHOTREXATE [Suspect]
     Active Substance: METHOTREXATE
     Indication: Acute lymphocytic leukaemia
     Dosage: 12 MG, ON DAYS 4 AND 31
     Route: 037
     Dates: start: 20190322, end: 20190421
  6. THIOGUANINE [Suspect]
     Active Substance: THIOGUANINE
     Indication: Acute lymphocytic leukaemia
     Dosage: 60 MG, ON DAYS 29 TO 42
     Route: 048
     Dates: start: 20190419, end: 20190502
  7. CYCLOPHOSPHAMIDE [Suspect]
     Active Substance: CYCLOPHOSPHAMIDE
     Indication: Acute lymphocytic leukaemia
     Dosage: 1060 MG, ON DAY 29
     Route: 042
     Dates: start: 20190419, end: 20190419
  8. CYTARABINE [Suspect]
     Active Substance: CYTARABINE
     Indication: Acute lymphocytic leukaemia
     Dosage: 80 MG, ON DAYS 31-34 AND 38-41
     Route: 042
     Dates: start: 20190421, end: 20190501

REACTIONS (3)
  - Osteonecrosis [Recovered/Resolved]
  - Intervertebral discitis [Recovered/Resolved]
  - Febrile bone marrow aplasia [Recovered/Resolved]

NARRATIVE: CASE EVENT DATE: 20190330
